FAERS Safety Report 9805700 (Version 1)
Quarter: 2014Q1

REPORT INFORMATION
  Report Type: Report from Study
  Country: US (occurrence: US)
  Receive Date: 20140109
  Receipt Date: 20140109
  Transmission Date: 20141002
  Serious: Yes (Hospitalization)
  Sender: FDA-Public Use
  Company Number: US-PURDUE-USA-2014-0110029

PATIENT
  Age: 72 Year
  Sex: Female

DRUGS (2)
  1. OXY CR TAB [Suspect]
     Indication: PRODUCT USED FOR UNKNOWN INDICATION
     Dosage: 80 MG, TID
     Route: 048
     Dates: start: 20131206
  2. OXY CR TAB [Suspect]
     Dosage: 20 MG, TID
     Route: 048
     Dates: start: 20131206

REACTIONS (1)
  - Small intestinal obstruction [Recovered/Resolved]
